FAERS Safety Report 7520257-8 (Version None)
Quarter: 2011Q2

REPORT INFORMATION
  Report Type: 
  Country: None (occurrence: None)
  Receive Date: 20110602
  Receipt Date: 20110519
  Transmission Date: 20111010
  Serious: Yes (Other)
  Sender: FDA-Public Use
  Company Number: KR-WATSON-2011-07179

PATIENT
  Age: 36 Year
  Sex: Male

DRUGS (1)
  1. BETAMETHASONE [Suspect]
     Dosage: UNK

REACTIONS (1)
  - PHAEOCHROMOCYTOMA CRISIS [None]
